FAERS Safety Report 23402126 (Version 1)
Quarter: 2024Q1

REPORT INFORMATION
  Report Type: Report from Study
  Country: US (occurrence: None)
  Receive Date: 20240115
  Receipt Date: 20240115
  Transmission Date: 20240410
  Serious: Yes (Death)
  Sender: FDA-Public Use
  Company Number: 2024A009120

PATIENT
  Sex: Female
  Weight: 52.2 kg

DRUGS (12)
  1. LYNPARZA [Suspect]
     Active Substance: OLAPARIB
     Indication: Ovarian cancer
     Route: 048
     Dates: start: 20231202
  2. POTASSIUM [Concomitant]
     Active Substance: POTASSIUM
  3. ELIQUIS [Concomitant]
     Active Substance: APIXABAN
  4. CALTRATE WITH VITAMIN D [Concomitant]
     Active Substance: CALCIUM CARBONATE\CHOLECALCIFEROL
  5. DETROL LA [Concomitant]
     Active Substance: TOLTERODINE TARTRATE
  6. ATORVASTATIN CALCIUM [Concomitant]
     Active Substance: ATORVASTATIN CALCIUM
  7. METOPROLOL SUCCINATE [Concomitant]
     Active Substance: METOPROLOL SUCCINATE
  8. ACETAMINOPHEN\HYDROCODONE [Concomitant]
     Active Substance: ACETAMINOPHEN\HYDROCODONE
  9. EZETIMIBE [Concomitant]
     Active Substance: EZETIMIBE
  10. ASCORBIC ACID [Concomitant]
     Active Substance: ASCORBIC ACID
  11. ALLEGRA ALLERGY [Concomitant]
     Active Substance: FEXOFENADINE HYDROCHLORIDE
  12. CARAFATE [Concomitant]
     Active Substance: SUCRALFATE

REACTIONS (1)
  - Death [Fatal]
